FAERS Safety Report 10530019 (Version 1)
Quarter: 2014Q4

REPORT INFORMATION
  Report Type: Spontaneous
  Country: US (occurrence: None)
  Receive Date: 20141020
  Receipt Date: 20141020
  Transmission Date: 20150528
  Serious: No
  Sender: FDA-Public Use
  Company Number: None

PATIENT
  Age: 61 Year
  Sex: Female
  Weight: 81.65 kg

DRUGS (1)
  1. HYDROCHLOROTHIAZIDE 12.5 MG, HERITAGE PHARMACY [Suspect]
     Active Substance: HYDROCHLOROTHIAZIDE
     Indication: HYPERTENSION
     Dosage: TAKEN BY MOUTH
     Route: 048
     Dates: start: 20141013, end: 20141017

REACTIONS (7)
  - Burning sensation [None]
  - Eye oedema [None]
  - Lip swelling [None]
  - Rash erythematous [None]
  - Swelling face [None]
  - Rash pruritic [None]
  - Vertigo [None]

NARRATIVE: CASE EVENT DATE: 20141017
